FAERS Safety Report 7805288-2 (Version None)
Quarter: 2011Q4

REPORT INFORMATION
  Report Type: 
  Country: None (occurrence: None)
  Receive Date: 20111010
  Receipt Date: 20111007
  Transmission Date: 20120403
  Serious: No
  Sender: FDA-Public Use
  Company Number: US-PFIZER INC-2011240349

PATIENT
  Sex: Female
  Weight: 62.132 kg

DRUGS (1)
  1. DIFLUCAN [Suspect]
     Indication: FUNGAL INFECTION
     Dosage: 150 MG, 1X/DAY
     Route: 048
     Dates: start: 20110829, end: 20110830

REACTIONS (1)
  - URTICARIA [None]
